FAERS Safety Report 8555495-9 (Version None)
Quarter: 2012Q3

REPORT INFORMATION
  Report Type: 
  Country: None (occurrence: None)
  Receive Date: 20120731
  Receipt Date: 20120229
  Transmission Date: 20120928
  Serious: Yes (Other)
  Sender: FDA-Public Use
  Company Number: US-ASTRAZENECA-2011SE04757

PATIENT
  Age: 76 Year
  Sex: Female
  Weight: 68 kg

DRUGS (18)
  1. SEROQUEL [Suspect]
     Route: 048
  2. LITHIUM CARBONATE [Concomitant]
  3. SEROQUEL [Suspect]
     Route: 048
  4. TRAZODONE HYDROCHLORIDE [Concomitant]
  5. METOPROLOL TARTRATE [Concomitant]
     Route: 048
  6. SEROQUEL [Suspect]
     Indication: BRONCHITIS
     Route: 048
  7. SEROQUEL [Suspect]
     Route: 048
  8. AMLODIPINE [Concomitant]
     Indication: BLOOD PRESSURE ABNORMAL
  9. LEVOTHYROXINE SODIUM [Concomitant]
     Indication: THYROID DISORDER
  10. AMITRIL [Concomitant]
  11. TERTHENAZINE [Concomitant]
  12. SEROQUEL [Suspect]
     Route: 048
  13. SEROQUEL [Suspect]
     Route: 048
  14. CARBONATE [Concomitant]
  15. CLONIDINE [Concomitant]
     Indication: BLOOD PRESSURE ABNORMAL
  16. ALPRAZOLAM [Concomitant]
     Indication: ANXIETY
  17. SEROQUEL [Suspect]
     Indication: BIPOLAR DISORDER
     Route: 048
  18. SEROQUEL [Suspect]
     Route: 048

REACTIONS (14)
  - HYPERTENSION [None]
  - SPEECH DISORDER [None]
  - FATIGUE [None]
  - PNEUMONIA [None]
  - SOMNOLENCE [None]
  - MALAISE [None]
  - BRONCHITIS [None]
  - INSOMNIA [None]
  - SUICIDAL BEHAVIOUR [None]
  - LETHARGY [None]
  - DRY MOUTH [None]
  - DRUG DOSE OMISSION [None]
  - OFF LABEL USE [None]
  - ASTHENIA [None]
